FAERS Safety Report 4621459-0 (Version None)
Quarter: 2005Q1

REPORT INFORMATION
  Report Type: 
  Country: None (occurrence: None)
  Receive Date: 20050318
  Receipt Date: 20041229
  Transmission Date: 20050727
  Serious: No
  Sender: FDA-Public Use
  Company Number: 2004244065US

PATIENT
  Age: 75 Year
  Sex: Female

DRUGS (2)
  1. XALATAN [Suspect]
     Indication: GLAUCOMA
     Dosage: OPHTHALMIC
     Route: 047
  2. BRIMONIDINE TARTRATE [Suspect]
     Indication: GLAUCOMA
     Dosage: INTRAOCULAR
     Route: 031

REACTIONS (1)
  - HYPERSENSITIVITY [None]
